FAERS Safety Report 21804317 (Version 5)
Quarter: 2023Q1

REPORT INFORMATION
  Report Type: Other
  Country: CA (occurrence: None)
  Receive Date: 20230102
  Receipt Date: 20230125
  Transmission Date: 20230418
  Serious: No
  Sender: FDA-Public Use
  Company Number: CA-ROCHE-3254919

PATIENT
  Age: 43 Year
  Sex: Female

DRUGS (6)
  1. OCREVUS [Suspect]
     Active Substance: OCRELIZUMAB
     Indication: Relapsing-remitting multiple sclerosis
     Dosage: 300 MG AT DAY 0 AND 14, THEN 600 MG EVERY 6 MONTH?OCRELIZUMAB 600MG IV IN 500 ML OF SODIUM CHLORIDE
     Route: 042
     Dates: start: 20200827
  2. SODIUM CHLORIDE [Concomitant]
     Active Substance: SODIUM CHLORIDE
  3. TYLENOL [Concomitant]
     Active Substance: ACETAMINOPHEN
  4. ADVIL [Concomitant]
     Active Substance: IBUPROFEN
  5. GRAVOL [Concomitant]
     Active Substance: DIMENHYDRINATE
  6. AMLODIPINE [Concomitant]
     Active Substance: AMLODIPINE BESYLATE
     Indication: Blood pressure measurement

REACTIONS (9)
  - COVID-19 [Recovered/Resolved]
  - Diarrhoea [Unknown]
  - Muscle spasticity [Unknown]
  - Bacterial vulvovaginitis [Recovered/Resolved]
  - Oral candidiasis [Recovered/Resolved]
  - Musculoskeletal stiffness [Not Recovered/Not Resolved]
  - Gait disturbance [Not Recovered/Not Resolved]
  - Muscle spasms [Not Recovered/Not Resolved]
  - Limb discomfort [Not Recovered/Not Resolved]

NARRATIVE: CASE EVENT DATE: 20221226
